FAERS Safety Report 7112073-6 (Version None)
Quarter: 2010Q4

REPORT INFORMATION
  Report Type: 
  Country: None (occurrence: None)
  Receive Date: 20101119
  Receipt Date: 20101110
  Transmission Date: 20110411
  Serious: Yes (Hospitalization, Other)
  Sender: FDA-Public Use
  Company Number: BR-US-EMD SERONO, INC.-7026170

PATIENT
  Sex: Female

DRUGS (5)
  1. REBIF [Suspect]
     Indication: RELAPSING-REMITTING MULTIPLE SCLEROSIS
     Dates: start: 20060213
  2. UNKNOWN [Concomitant]
     Indication: HORMONE REPLACEMENT THERAPY
  3. VENLAFAXINE [Concomitant]
  4. RIVOTRIL [Concomitant]
  5. LYRICA [Concomitant]

REACTIONS (3)
  - ABDOMINAL PAIN [None]
  - CENTRAL NERVOUS SYSTEM LESION [None]
  - MULTIPLE SCLEROSIS RELAPSE [None]
